FAERS Safety Report 7698804-5 (Version None)
Quarter: 2011Q3

REPORT INFORMATION
  Report Type: 
  Country: None (occurrence: None)
  Receive Date: 20110819
  Receipt Date: 20110817
  Transmission Date: 20111222
  Serious: Yes (Life-Threatening)
  Sender: FDA-Public Use
  Company Number: BE-GILEAD-2011-0042269

PATIENT
  Sex: Female

DRUGS (5)
  1. BACTRIM [Concomitant]
  2. CORTISONE ACETATE [Concomitant]
  3. EFAVIRENZ [Concomitant]
  4. TRUVADA [Suspect]
     Indication: HIV INFECTION
  5. ACETAMINOPHEN [Concomitant]

REACTIONS (1)
  - MENTAL DISORDER [None]
